FAERS Safety Report 5774982-X (Version None)
Quarter: 2008Q2

REPORT INFORMATION
  Report Type: 
  Country: None (occurrence: None)
  Receive Date: 20080617
  Receipt Date: 20080606
  Transmission Date: 20081010
  Serious: Yes (Other)
  Sender: FDA-Public Use
  Company Number: PHHY2008CA10437

PATIENT
  Age: 74 Year
  Sex: Male

DRUGS (7)
  1. LAMISIL [Suspect]
     Dosage: 250 MG/D
     Route: 048
  2. ATORVASTATIN [Concomitant]
  3. ASPIRIN [Concomitant]
  4. RAMIPRIL [Concomitant]
  5. DOXAZOSIN MESYLATE [Concomitant]
  6. METOPROLOL [Concomitant]
  7. METORPHINE [Concomitant]

REACTIONS (4)
  - LOCALISED OEDEMA [None]
  - NEPHROTIC SYNDROME [None]
  - OEDEMA PERIPHERAL [None]
  - WEIGHT INCREASED [None]
